FAERS Safety Report 13959477 (Version 1)
Quarter: 2017Q3

REPORT INFORMATION
  Report Type: Report from Study
  Country: None (occurrence: US)
  Receive Date: 20170912
  Receipt Date: 20170912
  Transmission Date: 20171128
  Serious: Yes (Other)
  Sender: FDA-Public Use
  Company Number: US-ABBVIE-17K-163-2035433-00

PATIENT
  Age: 74 Year
  Sex: Female

DRUGS (2)
  1. HUMIRA [Suspect]
     Active Substance: ADALIMUMAB
     Indication: PSORIATIC ARTHROPATHY
     Route: 058
     Dates: start: 201706, end: 201708
  2. REPATHA [Concomitant]
     Active Substance: EVOLOCUMAB
     Indication: PRODUCT USED FOR UNKNOWN INDICATION

REACTIONS (7)
  - Cystitis [Recovered/Resolved]
  - Back pain [Recovering/Resolving]
  - Cardiomegaly [Unknown]
  - Palpitations [Unknown]
  - Chromaturia [Unknown]
  - Renal cyst [Not Recovered/Not Resolved]
  - Heart valve incompetence [Unknown]

NARRATIVE: CASE EVENT DATE: 2017
